FAERS Safety Report 20903418 (Version 1)
Quarter: 2022Q2

REPORT INFORMATION
  Report Type: Spontaneous
  Country: FR (occurrence: FR)
  Receive Date: 20220601
  Receipt Date: 20220601
  Transmission Date: 20220721
  Serious: Yes (Hospitalization)
  Sender: FDA-Public Use
  Company Number: FR-AFSSAPS-PS20220800

PATIENT
  Age: 96 Year
  Sex: Female
  Weight: 84 kg

DRUGS (4)
  1. FUROSEMIDE [Suspect]
     Active Substance: FUROSEMIDE
     Indication: Hypertension
     Dosage: UNK (3/D)
     Route: 048
     Dates: end: 20220412
  2. ALDOMET [Suspect]
     Active Substance: METHYLDOPA
     Indication: Hypertension
     Dosage: UNK (3/D)
     Route: 048
     Dates: end: 20220412
  3. HYDROCHLOROTHIAZIDE\LOSARTAN POTASSIUM [Suspect]
     Active Substance: HYDROCHLOROTHIAZIDE\LOSARTAN POTASSIUM
     Indication: Hypertension
     Dosage: UNK (1/D)
     Route: 048
     Dates: end: 20220412
  4. TENORMIN [Suspect]
     Active Substance: ATENOLOL
     Indication: Hypertension
     Dosage: UNK (3/D)
     Route: 048
     Dates: end: 202204

REACTIONS (1)
  - Hypotension [Recovered/Resolved]

NARRATIVE: CASE EVENT DATE: 20220301
